FAERS Safety Report 4489215-4 (Version None)
Quarter: 2004Q4

REPORT INFORMATION
  Report Type: 
  Country: None (occurrence: None)
  Receive Date: 20041028
  Receipt Date: 20041013
  Transmission Date: 20050328
  Serious: Yes (Death, Other)
  Sender: FDA-Public Use
  Company Number: 51645

PATIENT
  Age: 2 Year
  Sex: Female

DRUGS (3)
  1. 12 HOUR PSEUDOEPHED, 120 MG, PERRIGO COMPANY [Suspect]
  2. DIPHENHYDRAMINE [Concomitant]
  3. PHENYLPROPANOLAMINE HCL [Concomitant]

REACTIONS (1)
  - OVERDOSE [None]
